FAERS Safety Report 25820569 (Version 1)
Quarter: 2025Q3

REPORT INFORMATION
  Report Type: Report from Study
  Country: US (occurrence: US)
  Receive Date: 20250919
  Receipt Date: 20250919
  Transmission Date: 20251020
  Serious: Yes (Other)
  Sender: JOHNSON AND JOHNSON
  Company Number: US-JNJFOC-20250924071

PATIENT
  Age: 31 Year
  Sex: Male

DRUGS (1)
  1. SPRAVATO [Suspect]
     Active Substance: ESKETAMINE
     Indication: Product used for unknown indication
     Route: 045
     Dates: start: 20250915

REACTIONS (4)
  - Hallucination [Unknown]
  - Unevaluable event [Unknown]
  - Speech disorder [Unknown]
  - Depression [Unknown]

NARRATIVE: CASE EVENT DATE: 20250915
